FAERS Safety Report 20815355 (Version 1)
Quarter: 2022Q2

REPORT INFORMATION
  Report Type: Spontaneous
  Country: US (occurrence: US)
  Receive Date: 20220511
  Receipt Date: 20220511
  Transmission Date: 20220721
  Serious: No
  Sender: FDA-Public Use
  Company Number: US-PFIZER INC-202200166004

PATIENT
  Age: 25 Year
  Sex: Female
  Weight: 42.64 kg

DRUGS (2)
  1. DUAVEE [Suspect]
     Active Substance: BAZEDOXIFENE ACETATE\ESTROGENS, CONJUGATED
     Indication: Menstrual cycle management
     Dosage: UNK UNK, 1X/DAY
  2. DUAVEE [Suspect]
     Active Substance: BAZEDOXIFENE ACETATE\ESTROGENS, CONJUGATED
     Indication: Osteoporosis

REACTIONS (3)
  - Menstrual disorder [Unknown]
  - Drug effective for unapproved indication [Unknown]
  - Off label use [Unknown]
